FAERS Safety Report 11770603 (Version 2)
Quarter: 2016Q2

REPORT INFORMATION
  Report Type: Spontaneous
  Country: US (occurrence: US)
  Receive Date: 20151123
  Receipt Date: 20160520
  Transmission Date: 20160815
  Serious: Yes (Other)
  Sender: FDA-Public Use
  Company Number: US-MDT-ADR-2015-02219

PATIENT
  Age: 18 Year
  Sex: Male

DRUGS (2)
  1. BACLOFEN. [Suspect]
     Active Substance: BACLOFEN
     Route: 048
  2. LIORESAL [Suspect]
     Active Substance: BACLOFEN
     Route: 037

REACTIONS (7)
  - Agitation [Unknown]
  - No therapeutic response [Unknown]
  - Drug withdrawal syndrome [Unknown]
  - Pruritus [Unknown]
  - Hypertonia [Unknown]
  - Hypotonia [Unknown]
  - Skin warm [Unknown]

NARRATIVE: CASE EVENT DATE: 2014
